FAERS Safety Report 25205750 (Version 2)
Quarter: 2025Q2

REPORT INFORMATION
  Report Type: Report from Study
  Country: IN (occurrence: IN)
  Receive Date: 20250417
  Receipt Date: 20250429
  Transmission Date: 20250716
  Serious: Yes (Death)
  Sender: ROCHE
  Company Number: IN-ROCHE-10000258051

PATIENT
  Age: 83 Year
  Sex: Female

DRUGS (1)
  1. TECENTRIQ [Suspect]
     Active Substance: ATEZOLIZUMAB
     Indication: Squamous cell carcinoma of lung
     Route: 065
     Dates: start: 20240924, end: 20250410

REACTIONS (1)
  - Death [Fatal]

NARRATIVE: CASE EVENT DATE: 20250410
